FAERS Safety Report 20449284 (Version 2)
Quarter: 2023Q1

REPORT INFORMATION
  Report Type: Spontaneous
  Country: US (occurrence: US)
  Receive Date: 20220209
  Receipt Date: 20230124
  Transmission Date: 20230417
  Serious: Yes (Hospitalization, Other)
  Sender: FDA-Public Use
  Company Number: US-NOVARTISPH-NVSC2022US026738

PATIENT
  Age: 11 Year
  Sex: Male

DRUGS (26)
  1. CANAKINUMAB [Suspect]
     Active Substance: CANAKINUMAB
     Indication: Still^s disease
     Dosage: 8 MG/KG, QMO
     Route: 065
     Dates: start: 201510, end: 201605
  2. TACROLIMUS [Suspect]
     Active Substance: TACROLIMUS
     Indication: Product used for unknown indication
     Dosage: UNK
     Route: 065
     Dates: start: 20160524
  3. TACROLIMUS [Suspect]
     Active Substance: TACROLIMUS
     Dosage: UNK
     Route: 065
     Dates: start: 201606
  4. TACROLIMUS [Suspect]
     Active Substance: TACROLIMUS
     Dosage: UNK
     Route: 065
     Dates: start: 201904
  5. METHYLPREDNISOLONE [Suspect]
     Active Substance: METHYLPREDNISOLONE
     Indication: Product used for unknown indication
     Dosage: 500 MG, QW
     Route: 042
  6. PREDNISOLONE [Suspect]
     Active Substance: PREDNISOLONE
     Indication: Product used for unknown indication
     Dosage: 9 MG, QD
     Route: 065
  7. PREDNISOLONE [Suspect]
     Active Substance: PREDNISOLONE
     Dosage: UNK
     Route: 065
     Dates: start: 202007
  8. PREDNISOLONE [Suspect]
     Active Substance: PREDNISOLONE
     Dosage: 9 MG, QD
     Route: 065
     Dates: start: 20210901
  9. PREDNISOLONE [Suspect]
     Active Substance: PREDNISOLONE
     Dosage: 6 MG, QD
     Route: 065
     Dates: start: 20211022
  10. PREDNISOLONE [Suspect]
     Active Substance: PREDNISOLONE
     Dosage: 9 MG, QD
     Route: 065
  11. RUXOLITINIB [Suspect]
     Active Substance: RUXOLITINIB
     Indication: Product used for unknown indication
     Dosage: 5 MG, BID
     Route: 065
     Dates: start: 202112
  12. RUXOLITINIB [Suspect]
     Active Substance: RUXOLITINIB
     Dosage: 10 MG, BID
     Route: 065
  13. ANAKINRA [Suspect]
     Active Substance: ANAKINRA
     Indication: Product used for unknown indication
     Dosage: UNK
     Route: 065
  14. ANAKINRA [Suspect]
     Active Substance: ANAKINRA
     Dosage: UNK
     Route: 065
     Dates: start: 2016
  15. ANAKINRA [Suspect]
     Active Substance: ANAKINRA
     Dosage: 100 MG, BID
     Route: 065
     Dates: start: 201712
  16. ANAKINRA [Suspect]
     Active Substance: ANAKINRA
     Dosage: UNK UNK, BID
     Route: 065
     Dates: start: 201904
  17. ANAKINRA [Suspect]
     Active Substance: ANAKINRA
     Dosage: UNK, QD
     Route: 065
     Dates: start: 202104
  18. ANAKINRA [Suspect]
     Active Substance: ANAKINRA
     Dosage: UNK, BID
     Route: 065
     Dates: start: 20211022
  19. ANAKINRA [Suspect]
     Active Substance: ANAKINRA
     Dosage: 100 MG, BID
     Route: 065
  20. PENTAMIDINE [Suspect]
     Active Substance: PENTAMIDINE
     Indication: Product used for unknown indication
     Dosage: UNK
     Route: 065
     Dates: start: 201712
  21. PENTAMIDINE [Suspect]
     Active Substance: PENTAMIDINE
     Dosage: UNK, EVERY 4 WEEKS
     Route: 042
  22. TOFACITINIB [Suspect]
     Active Substance: TOFACITINIB
     Indication: Product used for unknown indication
     Dosage: UNK
     Route: 065
     Dates: start: 202007
  23. TOFACITINIB [Suspect]
     Active Substance: TOFACITINIB
     Dosage: UNK UNK, BID
     Route: 065
     Dates: start: 20210901
  24. METHOTREXATE SODIUM [Concomitant]
     Active Substance: METHOTREXATE SODIUM
     Indication: Product used for unknown indication
     Dosage: UNK
     Route: 065
     Dates: start: 201508
  25. PREDNISONE [Concomitant]
     Active Substance: PREDNISONE
     Indication: Product used for unknown indication
     Dosage: UNK
     Route: 065
     Dates: start: 201512
  26. PREDNISONE [Concomitant]
     Active Substance: PREDNISONE
     Dosage: UNK
     Route: 065
     Dates: start: 201711

REACTIONS (18)
  - Haematochezia [Unknown]
  - Disease progression [Not Recovered/Not Resolved]
  - Inflammatory bowel disease [Unknown]
  - Haemophagocytic lymphohistiocytosis [Unknown]
  - Condition aggravated [Unknown]
  - Viral infection [Unknown]
  - Hyperferritinaemia [Unknown]
  - Gastrointestinal disorder [Unknown]
  - Rash [Unknown]
  - Pyrexia [Unknown]
  - Bronchial atresia [Unknown]
  - Red blood cell sedimentation rate increased [Unknown]
  - Dactylitis [Unknown]
  - Colitis [Unknown]
  - Dermatitis atopic [Unknown]
  - Drug intolerance [Unknown]
  - Therapeutic product effect incomplete [Unknown]
  - Drug ineffective [Unknown]

NARRATIVE: CASE EVENT DATE: 20150701
